FAERS Safety Report 4530687-4 (Version None)
Quarter: 2004Q4

REPORT INFORMATION
  Report Type: 
  Country: None (occurrence: None)
  Receive Date: 20041217
  Receipt Date: 20041206
  Transmission Date: 20050328
  Serious: Yes (Hospitalization)
  Sender: FDA-Public Use
  Company Number: 200111878BWH

PATIENT
  Age: 55 Year
  Sex: Female

DRUGS (4)
  1. AMOXICILLIN + CLAVULANIC ACID [Suspect]
     Indication: ABDOMINAL INFECTION
     Dosage: 800MG TWICE PER DAY
     Route: 048
     Dates: start: 20010613, end: 20010619
  2. PIPERACILLIN + TAZOBACTAM [Suspect]
     Indication: ABDOMINAL INFECTION
     Dosage: 3.375G FOUR TIMES PER DAY
     Route: 042
     Dates: start: 20010610, end: 20010613
  3. COLACE [Concomitant]
     Indication: CONSTIPATION
     Route: 048
     Dates: start: 20010622, end: 20010625
  4. DULCOLAX [Concomitant]
     Route: 054
     Dates: start: 20010625, end: 20010625

REACTIONS (5)
  - ABSCESS [None]
  - HEADACHE [None]
  - OEDEMA PERIPHERAL [None]
  - THROMBOSIS [None]
  - WOUND INFECTION [None]
